FAERS Safety Report 26055190 (Version 1)
Quarter: 2025Q4

REPORT INFORMATION
  Report Type: Report from Study
  Country: US (occurrence: US)
  Receive Date: 20251117
  Receipt Date: 20251117
  Transmission Date: 20260117
  Serious: Yes (Other)
  Sender: ABBVIE
  Company Number: US-ABBVIE-6543818

PATIENT
  Sex: Female

DRUGS (1)
  1. RINVOQ [Suspect]
     Active Substance: UPADACITINIB
     Indication: Rheumatoid arthritis
     Route: 048
     Dates: start: 20240202

REACTIONS (4)
  - Splinter [Not Recovered/Not Resolved]
  - Peripheral swelling [Unknown]
  - Staphylococcal infection [Not Recovered/Not Resolved]
  - Pain in extremity [Unknown]
